FAERS Safety Report 23471278 (Version 1)
Quarter: 2024Q1

REPORT INFORMATION
  Report Type: Spontaneous
  Country: SA (occurrence: SA)
  Receive Date: 20240202
  Receipt Date: 20240202
  Transmission Date: 20240410
  Serious: Yes (Hospitalization, Other)
  Sender: FDA-Public Use
  Company Number: SA-NOVOPROD-1166232

PATIENT
  Age: 58 Year
  Sex: Male

DRUGS (9)
  1. LIRAGLUTIDE [Suspect]
     Active Substance: LIRAGLUTIDE
     Indication: Diabetes mellitus
     Dosage: UNK
  2. LIRAGLUTIDE [Suspect]
     Active Substance: LIRAGLUTIDE
     Dosage: 1.2 MG, QD
  3. METFORMIN [Concomitant]
     Active Substance: METFORMIN HYDROCHLORIDE
     Indication: Diabetes mellitus
     Dosage: UNK
  4. NYSTATIN [Concomitant]
     Active Substance: NYSTATIN
     Dosage: UNK
  5. SITAGLIPTIN [Concomitant]
     Active Substance: SITAGLIPTIN
     Dosage: UNK
  6. INSULIN ASPART [Concomitant]
     Active Substance: INSULIN ASPART
     Indication: Diabetes mellitus
     Dosage: 50 IU, TID
  7. INSULIN GLARGINE [Concomitant]
     Active Substance: INSULIN GLARGINE
     Indication: Diabetes mellitus
     Dosage: 50 IU, QD
  8. ASPIRIN [Concomitant]
     Active Substance: ASPIRIN
  9. LIPITOR [Concomitant]
     Active Substance: ATORVASTATIN CALCIUM
     Dosage: UNK

REACTIONS (2)
  - Drug-induced liver injury [Unknown]
  - Nephropathy toxic [Unknown]
